FAERS Safety Report 4660231-2 (Version None)
Quarter: 2005Q2

REPORT INFORMATION
  Report Type: 
  Country: None (occurrence: None)
  Receive Date: 20050427
  Receipt Date: 20050112
  Transmission Date: 20051028
  Serious: No
  Sender: FDA-Public Use
  Company Number: 211684

PATIENT
  Age: 69 Year
  Sex: Male

DRUGS (5)
  1. XOLAIR [Suspect]
     Indication: ASTHMA
     Dosage: SUBCUTANEOUS
     Route: 058
     Dates: start: 20050106
  2. ALBUTEROL (ALBUTEROL SULFATE, ALBUTEROL) [Concomitant]
  3. FLOMAX [Concomitant]
  4. FORADIL [Concomitant]
  5. INTAL [Concomitant]

REACTIONS (1)
  - ASTHMA [None]
